FAERS Safety Report 8251480-5 (Version None)
Quarter: 2012Q2

REPORT INFORMATION
  Report Type: 
  Country: None (occurrence: None)
  Receive Date: 20120402
  Receipt Date: 20120326
  Transmission Date: 20120825
  Serious: Yes (Other)
  Sender: FDA-Public Use
  Company Number: JP-VERTEX PHARMACEUTICALS INC.-AE-2012-004521

PATIENT
  Age: 70 Year
  Sex: Male

DRUGS (5)
  1. TELAVIC (TELAPREVIR) [Suspect]
     Indication: HEPATITIS C
     Route: 048
     Dates: start: 20120207
  2. RIBAVIRIN [Concomitant]
     Route: 048
     Dates: start: 20120221
  3. PEGINTERFERON [Concomitant]
     Indication: HEPATITIS C
     Route: 051
     Dates: start: 20120207, end: 20120220
  4. RIBAVIRIN [Concomitant]
     Indication: HEPATITIS C
     Route: 048
     Dates: start: 20120207, end: 20120220
  5. PEGINTERFERON [Concomitant]
     Route: 051
     Dates: start: 20120221

REACTIONS (9)
  - HYPERTENSION [None]
  - PLATELET COUNT DECREASED [None]
  - NEUTROPHIL COUNT DECREASED [None]
  - BLOOD BILIRUBIN INCREASED [None]
  - RASH [None]
  - RED BLOOD CELL COUNT DECREASED [None]
  - BLOOD URIC ACID INCREASED [None]
  - HAEMOGLOBIN DECREASED [None]
  - PYREXIA [None]
